FAERS Safety Report 14922297 (Version 1)
Quarter: 2018Q2

REPORT INFORMATION
  Report Type: Spontaneous
  Country: DE (occurrence: DE)
  Receive Date: 20180522
  Receipt Date: 20180522
  Transmission Date: 20180711
  Serious: Yes (Hospitalization)
  Sender: FDA-Public Use
  Company Number: DE-CONCORDIA PHARMACEUTICALS INC.-E2B_00011749

PATIENT
  Age: 79 Year
  Sex: Female
  Weight: 120 kg

DRUGS (24)
  1. APIDRA [Concomitant]
     Active Substance: INSULIN GLULISINE
     Dosage: SCHEMA, INJEKTIONS-/INFUSIONSL?SUNG
     Route: 058
  2. ALLOPURINOL. [Concomitant]
     Active Substance: ALLOPURINOL
     Dosage: 100 MG, 1-0-0-0, TABLETTEN
     Route: 048
  3. MOVICOL [Concomitant]
     Active Substance: POLYETHYLENE GLYCOL 3350\POTASSIUM CHLORIDE\SODIUM BICARBONATE\SODIUM CHLORIDE
     Dosage: 13.125|0.35|0.18|0.05 G, BEDARF, BEUTEL
     Route: 048
  4. TOUJEO 300 EINHEITEN/ML INJEKTIONSL?SUNG IN FERTIGPEN [Concomitant]
     Dosage: SCHEMA, INJEKTIONS-/INFUSIONSL?SUNG
     Route: 058
  5. FENTANYL. [Concomitant]
     Active Substance: FENTANYL
     Dosage: 37.5 MICROG, SCHEMA, PFLASTER TRANSDERMAL
     Route: 062
  6. LYRICA [Concomitant]
     Active Substance: PREGABALIN
     Dosage: 25 MG, 1-0-1-0, KAPSELN
     Route: 048
  7. DEKRISTOL 20000I.E. [Concomitant]
     Dosage: 20000 IE / WOCHE, 1-0-0-0, KAPSELN
     Route: 048
  8. L-THYROXIN 50 [Concomitant]
     Active Substance: LEVOTHYROXINE SODIUM
     Dosage: 50 MICROG, 1-0-0-0, TABLETTEN
     Route: 048
  9. NEBIVOLOL. [Concomitant]
     Active Substance: NEBIVOLOL
     Dosage: 5 MG, 0-0-1-0, TABLETTEN
     Route: 048
  10. ASS 100 [Concomitant]
     Active Substance: ASPIRIN
     Dosage: 100 MG, 1-0-0-0, TABLETTEN
     Route: 048
  11. IBEROGAST N [Concomitant]
     Dosage: BEDARF, TROPFEN
     Route: 048
  12. HYDROXYCHLOROQUINE [Suspect]
     Active Substance: HYDROXYCHLOROQUINE
     Dosage: 200 MG, 1-0-0-0, TABLETTEN
     Route: 048
  13. HYDROCHLOROTHIAZID [Concomitant]
     Active Substance: HYDROCHLOROTHIAZIDE
     Dosage: 25 MG, 1-0-0-0, TABLETTEN
     Route: 048
  14. MAGNETRANS FORTE 150MG [Concomitant]
     Dosage: 150 MG, BEDARF, KAPSELN
     Route: 048
  15. RAMIPRIL. [Concomitant]
     Active Substance: RAMIPRIL
     Dosage: 2.5 MG, 1-0-0-0, TABLETTEN
     Route: 048
  16. VOMEX A [Concomitant]
     Active Substance: DIMENHYDRINATE
     Dosage: BEDARF, DRAGEES
     Route: 048
  17. PIPAMPERONE [Concomitant]
     Active Substance: PIPAMPERONE
     Dosage: BEDARF, SAFT
     Route: 048
  18. PREDNISOLONE. [Suspect]
     Active Substance: PREDNISOLONE
     Dosage: 5 MG, 1-0-0-0, TABLETTEN
     Route: 048
  19. FUROSEMID [Concomitant]
     Active Substance: FUROSEMIDE
     Dosage: 125 MG, 1-1-0-0, TABLETTEN
     Route: 048
  20. NOVALGIN (METAMIZOLE SODIUM) [Concomitant]
     Active Substance: METAMIZOLE SODIUM
     Dosage: 500 MG, 1-1-1-1, TABLETTEN
     Route: 048
  21. PERENTEROL FORTE 250MG [Concomitant]
     Dosage: 250 MG, BEDARF, KAPSELN
     Route: 048
  22. ECURAL SALBE [Concomitant]
     Dosage: 1-0-1-0, SALBE
     Route: 062
  23. SIMVASTATIN. [Concomitant]
     Active Substance: SIMVASTATIN
     Dosage: 20 MG, 0-0-1-0, TABLETTEN
     Route: 048
  24. PANTOZOL [Concomitant]
     Active Substance: PANTOPRAZOLE SODIUM
     Dosage: 40 MG, 1-0-1-0, TABLETTEN
     Route: 048

REACTIONS (7)
  - Vomiting [Unknown]
  - Headache [Unknown]
  - Chest pain [Unknown]
  - Pyrexia [Unknown]
  - Dysuria [Unknown]
  - General physical health deterioration [Unknown]
  - Dyspnoea [Unknown]
